FAERS Safety Report 20668479 (Version 1)
Quarter: 2022Q2

REPORT INFORMATION
  Report Type: Spontaneous
  Country: US (occurrence: US)
  Receive Date: 20220404
  Receipt Date: 20220404
  Transmission Date: 20220721
  Serious: No
  Sender: FDA-Public Use
  Company Number: US-PFIZER INC-2021841801

PATIENT
  Age: 51 Year
  Sex: Male
  Weight: 80.726 kg

DRUGS (4)
  1. SUTENT [Suspect]
     Active Substance: SUNITINIB MALATE
     Indication: Pancreatic carcinoma
     Dosage: 37.5 MG, DAILY
     Route: 048
     Dates: start: 20210516
  2. FINASTERIDE [Concomitant]
     Active Substance: FINASTERIDE
  3. PRAVASTATIN SODIUM [Concomitant]
     Active Substance: PRAVASTATIN SODIUM
  4. LISINOPRIL [Concomitant]
     Active Substance: LISINOPRIL

REACTIONS (1)
  - Abdominal discomfort [Unknown]
